FAERS Safety Report 6584245-0 (Version None)
Quarter: 2010Q1

REPORT INFORMATION
  Report Type: 
  Country: None (occurrence: None)
  Receive Date: 20100216
  Receipt Date: 20100202
  Transmission Date: 20100710
  Serious: Yes (Other)
  Sender: FDA-Public Use
  Company Number: US-JNJFOC-20100201766

PATIENT
  Age: 25 Year
  Sex: Male

DRUGS (2)
  1. INVEGA [Suspect]
     Indication: MENTAL RETARDATION
     Route: 048
  2. INVEGA [Suspect]
     Indication: SCHIZOPHRENIA, PARANOID TYPE
     Route: 048

REACTIONS (1)
  - WEIGHT INCREASED [None]
